FAERS Safety Report 8174538-8 (Version None)
Quarter: 2012Q1

REPORT INFORMATION
  Report Type: 
  Country: None (occurrence: None)
  Receive Date: 20120229
  Receipt Date: 20120224
  Transmission Date: 20120608
  Serious: Yes (Hospitalization)
  Sender: FDA-Public Use
  Company Number: FR-PFIZER INC-2012048925

PATIENT
  Age: 60 Year
  Sex: Female

DRUGS (6)
  1. FLUOROURACIL [Suspect]
     Indication: BREAST CANCER
  2. CYCLOPHOSPHAMIDE [Suspect]
     Indication: BREAST CANCER
  3. TAMOXIFEN CITRATE [Suspect]
     Indication: BREAST CANCER
  4. AROMASIN [Suspect]
     Indication: BREAST CANCER
     Dosage: 25 MG, UNK
     Dates: end: 20101001
  5. EPIRUBICIN HYDROCHLORIDE [Suspect]
     Indication: BREAST CANCER
  6. ARIMIDEX [Suspect]
     Indication: BREAST CANCER

REACTIONS (2)
  - PULMONARY HYPERTENSION [None]
  - CARDIAC FAILURE [None]
